FAERS Safety Report 23830802 (Version 1)
Quarter: 2024Q2

REPORT INFORMATION
  Report Type: Spontaneous
  Country: US (occurrence: US)
  Receive Date: 20240508
  Receipt Date: 20240508
  Transmission Date: 20240716
  Serious: No
  Sender: FDA-Public Use
  Company Number: US-009507513-2404USA007876

PATIENT
  Age: 94 Year
  Sex: Male

DRUGS (2)
  1. KEYTRUDA [Suspect]
     Active Substance: PEMBROLIZUMAB
     Indication: Malignant melanoma
     Dosage: Q3W, INTRAVENOUS, #3 CYCLES
     Route: 042
     Dates: start: 20240109, end: 20240213
  2. PREDNISONE [Concomitant]
     Active Substance: PREDNISONE
     Dosage: UNK

REACTIONS (6)
  - Confusional state [Unknown]
  - Blood urine [Unknown]
  - Liver function test increased [Unknown]
  - Full blood count decreased [Unknown]
  - Amnesia [Unknown]
  - Decreased appetite [Unknown]

NARRATIVE: CASE EVENT DATE: 20240109
